FAERS Safety Report 5232565-4 (Version None)
Quarter: 2007Q1

REPORT INFORMATION
  Report Type: 
  Country: None (occurrence: None)
  Receive Date: 20070207
  Receipt Date: 20070130
  Transmission Date: 20070707
  Serious: Yes (Life-Threatening, Hospitalization, Disabling)
  Sender: FDA-Public Use
  Company Number: GB-ROCHE-477693

PATIENT
  Age: 59 Year
  Sex: Female
  Weight: 96 kg

DRUGS (5)
  1. BONVIVA [Suspect]
     Indication: OSTEOPOROSIS POSTMENOPAUSAL
     Route: 048
     Dates: start: 19960411, end: 20060815
  2. PARACETAMOL [Concomitant]
     Route: 048
     Dates: start: 20040615
  3. TRANDOLAPRIL [Concomitant]
     Indication: HYPERTENSION
     Route: 048
     Dates: start: 20040615, end: 20060815
  4. FLUOXETINE [Concomitant]
     Route: 048
     Dates: start: 20060715
  5. DIHYDROCODEINE BITARTRATE INJ [Concomitant]
     Indication: ANALGESIC THERAPY
     Route: 048
     Dates: start: 20040615

REACTIONS (2)
  - HYDROCEPHALUS [None]
  - SUBARACHNOID HAEMORRHAGE [None]
